FAERS Safety Report 5956805-9 (Version None)
Quarter: 2008Q4

REPORT INFORMATION
  Report Type: 
  Country: None (occurrence: None)
  Receive Date: 20081114
  Receipt Date: 20081114
  Transmission Date: 20090506
  Serious: No
  Sender: FDA-Public Use
  Company Number: None

PATIENT
  Age: 14 Year
  Sex: Female

DRUGS (1)
  1. GADOPENTETATE DIMEGLUMINE [Suspect]
     Dosage: IV
     Route: 042
     Dates: start: 20081112, end: 20081112

REACTIONS (2)
  - MALAISE [None]
  - VOMITING [None]
